FAERS Safety Report 19618418 (Version 1)
Quarter: 2021Q3

REPORT INFORMATION
  Report Type: Report from Study
  Country: EC (occurrence: EC)
  Receive Date: 20210728
  Receipt Date: 20210728
  Transmission Date: 20211014
  Serious: Yes (Hospitalization)
  Sender: FDA-Public Use
  Company Number: NVSC2021EC163378

PATIENT
  Sex: Female

DRUGS (1)
  1. BYL719 [Suspect]
     Active Substance: ALPELISIB
     Indication: BREAST CANCER
     Dosage: 300 MG
     Route: 065

REACTIONS (3)
  - General physical health deterioration [Unknown]
  - Hyperglycaemia [Unknown]
  - Seizure [Unknown]
